FAERS Safety Report 20958599 (Version 1)
Quarter: 2022Q2

REPORT INFORMATION
  Report Type: Spontaneous
  Country: US (occurrence: None)
  Receive Date: 20220614
  Receipt Date: 20220614
  Transmission Date: 20220720
  Serious: Yes (Hospitalization)
  Sender: FDA-Public Use
  Company Number: 2022A210978

PATIENT
  Age: 889 Month
  Sex: Female
  Weight: 99.8 kg

DRUGS (3)
  1. SYMBICORT [Suspect]
     Active Substance: BUDESONIDE\FORMOTEROL FUMARATE DIHYDRATE
     Indication: Dyspnoea
     Route: 055
     Dates: start: 202106
  2. SYMBICORT [Suspect]
     Active Substance: BUDESONIDE\FORMOTEROL FUMARATE DIHYDRATE
     Indication: Dyspnoea
     Dosage: 160/4.5MCG 2 PUFFS
     Route: 055
     Dates: start: 20220602
  3. SYMBICORT [Suspect]
     Active Substance: BUDESONIDE\FORMOTEROL FUMARATE DIHYDRATE
     Indication: Dyspnoea
     Dosage: 160/4.5MCG 2 PUFFS
     Route: 055
     Dates: start: 20220602

REACTIONS (7)
  - Blood sodium decreased [Recovering/Resolving]
  - Pneumonia [Unknown]
  - Emphysema [Not Recovered/Not Resolved]
  - Dyspnoea [Unknown]
  - Device use issue [Unknown]
  - Product use issue [Not Recovered/Not Resolved]
  - Device issue [Unknown]

NARRATIVE: CASE EVENT DATE: 20210601
